FAERS Safety Report 24793981 (Version 1)
Quarter: 2024Q4

REPORT INFORMATION
  Report Type: Spontaneous
  Country: GB (occurrence: GB)
  Receive Date: 20241231
  Receipt Date: 20241231
  Transmission Date: 20250115
  Serious: Yes (Other)
  Sender: MYLAN
  Company Number: None

PATIENT
  Age: 60 Year
  Sex: Female

DRUGS (1)
  1. ATORVASTATIN [Suspect]
     Active Substance: ATORVASTATIN
     Indication: Hypercholesterolaemia
     Dosage: 20 MILLIGRAM, QD (DAILY)
     Route: 065
     Dates: start: 20171001, end: 20241001

REACTIONS (7)
  - Diabetes mellitus [Not Recovered/Not Resolved]
  - Tendon disorder [Not Recovered/Not Resolved]
  - Chronic fatigue syndrome [Not Recovered/Not Resolved]
  - Medication error [Unknown]
  - Muscle spasms [Not Recovered/Not Resolved]
  - Muscular weakness [Recovering/Resolving]
  - Neck pain [Not Recovered/Not Resolved]
